FAERS Safety Report 13352323 (Version 1)
Quarter: 2017Q1

REPORT INFORMATION
  Report Type: Spontaneous
  Country: US (occurrence: US)
  Receive Date: 20170320
  Receipt Date: 20170320
  Transmission Date: 20170429
  Serious: No
  Sender: FDA-Public Use
  Company Number: US-SA-2017SA005601

PATIENT
  Sex: Female

DRUGS (2)
  1. NASACORT ALLERGY 24HR [Suspect]
     Active Substance: TRIAMCINOLONE ACETONIDE
     Dosage: PER INSTRUCTIONS
     Route: 065
     Dates: start: 201609, end: 201610
  2. NASACORT ALLERGY 24HR [Suspect]
     Active Substance: TRIAMCINOLONE ACETONIDE
     Dosage: PER INSTRUCTIONS
     Route: 065
     Dates: start: 201609, end: 201610

REACTIONS (4)
  - Furuncle [Unknown]
  - Drug ineffective [Unknown]
  - Nasal discomfort [Unknown]
  - Epistaxis [Unknown]
